FAERS Safety Report 5496304-4 (Version None)
Quarter: 2007Q4

REPORT INFORMATION
  Report Type: 
  Country: None (occurrence: None)
  Receive Date: 20071025
  Receipt Date: 20070323
  Transmission Date: 20080405
  Serious: Yes (Other)
  Sender: FDA-Public Use
  Company Number: A0644360A

PATIENT
  Age: 80 Year
  Sex: Female

DRUGS (7)
  1. ADVAIR DISKUS 100/50 [Suspect]
     Indication: ASTHMA
     Dosage: 1PUFF TWICE PER DAY
     Route: 055
     Dates: start: 19950101
  2. LISINOPRIL [Concomitant]
  3. HYDROCHLOROTHIAZIDE [Concomitant]
  4. DOXAZOSIN MESYLATE [Concomitant]
  5. QUININE SULFATE [Concomitant]
  6. ALBUTEROL [Concomitant]
  7. UNSPECIFIED MEDICATION [Concomitant]

REACTIONS (1)
  - GLAUCOMA [None]
